FAERS Safety Report 10045182 (Version 2)
Quarter: 2014Q2

REPORT INFORMATION
  Report Type: Spontaneous
  Country: JP (occurrence: JP)
  Receive Date: 20140328
  Receipt Date: 20140403
  Transmission Date: 20141212
  Serious: Yes (Death, Other)
  Sender: FDA-Public Use
  Company Number: JP-PFIZER INC-2014087951

PATIENT
  Age: 50 Year
  Sex: Male

DRUGS (9)
  1. CISPLATIN [Suspect]
     Indication: DIFFUSE LARGE B-CELL LYMPHOMA
  2. METHYLPREDNISOLONE [Suspect]
     Indication: DIFFUSE LARGE B-CELL LYMPHOMA
  3. ADRIACIN [Suspect]
     Indication: DIFFUSE LARGE B-CELL LYMPHOMA
  4. RITUXIMAB [Suspect]
  5. ETOPOSIDE [Suspect]
  6. CYTARABINE [Suspect]
  7. CYCLOPHOSPHAMID [Suspect]
  8. VINCRISTINE SULFATE [Suspect]
  9. DEXAMETHASONE [Suspect]

REACTIONS (2)
  - Pneumonia adenoviral [Fatal]
  - Cystitis haemorrhagic [Unknown]
